FAERS Safety Report 10085771 (Version 4)
Quarter: 2014Q2

REPORT INFORMATION
  Report Type: Spontaneous
  Country: US (occurrence: US)
  Receive Date: 20140418
  Receipt Date: 20140616
  Transmission Date: 20141212
  Serious: Yes (Other)
  Sender: FDA-Public Use
  Company Number: US-PFIZER INC-2014106930

PATIENT
  Age: 67 Year
  Sex: Male

DRUGS (7)
  1. XALKORI [Suspect]
     Indication: NON-SMALL CELL LUNG CANCER METASTATIC
     Dosage: 250 MG, 2X/DAY
     Route: 048
     Dates: start: 20140217, end: 20140320
  2. XALKORI [Suspect]
     Dosage: 250 MG, DAILY
     Route: 048
     Dates: start: 20140414, end: 201404
  3. XALKORI [Suspect]
     Dosage: 250 MG, ALTERNATE DAY
     Route: 048
     Dates: start: 20140428, end: 2014
  4. XALKORI [Suspect]
     Dosage: 250 MG/DAY FOR 2 DAYS AND THE THIRD DAY OFF (D1, D2 HOLD D3)
     Route: 048
     Dates: start: 20140507, end: 201405
  5. XALKORI [Suspect]
     Dosage: 250 MG, EVERY DAY
     Route: 048
     Dates: start: 20140514
  6. ZETIA [Concomitant]
     Indication: HYPERLIPIDAEMIA
     Dosage: 10 MG, 1X/DAY
     Dates: start: 20130221
  7. XGEVA [Concomitant]
     Indication: METASTASES TO BONE
     Dosage: 120 MG, UNK (EVERY 4 WEEKS)
     Dates: start: 20120703

REACTIONS (3)
  - Hepatotoxicity [Not Recovered/Not Resolved]
  - Dysgeusia [Unknown]
  - Nausea [Unknown]
